FAERS Safety Report 15188098 (Version 1)
Quarter: 2018Q3

REPORT INFORMATION
  Report Type: Spontaneous
  Country: IN (occurrence: IN)
  Receive Date: 20180724
  Receipt Date: 20180724
  Transmission Date: 20181010
  Serious: Yes (Other)
  Sender: FDA-Public Use
  Company Number: IN-VIVIMED-2018SP006086

PATIENT

DRUGS (2)
  1. METRONIDAZOLE. [Suspect]
     Active Substance: METRONIDAZOLE
     Dosage: 2 G, PER DAY
     Route: 065
  2. METRONIDAZOLE. [Suspect]
     Active Substance: METRONIDAZOLE
     Indication: IRRITABLE BOWEL SYNDROME
     Dosage: 400 MG, PER DAY
     Route: 065

REACTIONS (7)
  - Depressed level of consciousness [Recovered/Resolved]
  - Off label use [Unknown]
  - Toxic encephalopathy [Recovered/Resolved]
  - Medication error [Unknown]
  - Mental status changes [Recovered/Resolved]
  - Central nervous system lesion [Recovered/Resolved]
  - Peripheral sensorimotor neuropathy [Recovered/Resolved]
